FAERS Safety Report 10090000 (Version 2)
Quarter: 2022Q4

REPORT INFORMATION
  Report Type: Report from Study
  Country: CA (occurrence: CA)
  Receive Date: 20140421
  Receipt Date: 20221027
  Transmission Date: 20230113
  Serious: Yes (Other)
  Sender: FDA-Public Use
  Company Number: CA-JNJFOC-20140411796

PATIENT
  Age: 54 Year
  Sex: Female
  Weight: 57 kg

DRUGS (2)
  1. REMICADE [Suspect]
     Active Substance: INFLIXIMAB
     Indication: Crohn^s disease
     Dosage: 0,2,6 WEEKS AND EVERY 8 WEEKS
     Route: 042
     Dates: start: 20140127
  2. REMICADE [Suspect]
     Active Substance: INFLIXIMAB
     Dosage: THE PATIENT RECEIVED DOSE ON 11/MAR/2014.
     Route: 042
     Dates: end: 20140506

REACTIONS (4)
  - Intestinal stenosis [Not Recovered/Not Resolved]
  - Drug ineffective [Not Recovered/Not Resolved]
  - Inflammation [Unknown]
  - Crohn^s disease [Unknown]

NARRATIVE: CASE EVENT DATE: 20140101
